FAERS Safety Report 4687813-6 (Version None)
Quarter: 2005Q2

REPORT INFORMATION
  Report Type: 
  Country: None (occurrence: None)
  Receive Date: 20050610
  Receipt Date: 20050601
  Transmission Date: 20051028
  Serious: Yes (Death)
  Sender: FDA-Public Use
  Company Number: US-JNJFOC-20040607503

PATIENT
  Sex: Male
  Weight: 90.27 kg

DRUGS (2)
  1. EXTRA STRENGTH TYLENOL [Suspect]
     Indication: DRUG USE FOR UNKNOWN INDICATION
     Route: 065
  2. PRESCRIPTION PRODUCT [Interacting]
     Indication: DRUG USE FOR UNKNOWN INDICATION

REACTIONS (5)
  - AGITATION [None]
  - DEATH [None]
  - DIZZINESS [None]
  - DRUG INTERACTION [None]
  - OVERDOSE [None]
